FAERS Safety Report 4849810-7 (Version None)
Quarter: 2005Q4

REPORT INFORMATION
  Report Type: 
  Country: None (occurrence: None)
  Receive Date: 20051209
  Receipt Date: 20050803
  Transmission Date: 20060501
  Serious: Yes (Hospitalization)
  Sender: FDA-Public Use
  Company Number: US-MERCK-0508USA01264

PATIENT
  Age: 67 Year
  Sex: Female
  Weight: 70 kg

DRUGS (8)
  1. VIOXX [Suspect]
     Indication: OSTEOARTHRITIS
     Route: 048
     Dates: start: 20010101, end: 20030926
  2. VIOXX [Suspect]
     Indication: BACK PAIN
     Route: 048
     Dates: start: 20010101, end: 20030926
  3. PREVACID [Concomitant]
     Route: 065
  4. COZAAR [Concomitant]
     Route: 065
     Dates: start: 20010222
  5. TOPROL-XL [Concomitant]
     Route: 065
     Dates: start: 20010301
  6. LASIX [Concomitant]
     Route: 065
     Dates: start: 20010301
  7. TYLENOL (CAPLET) [Concomitant]
     Route: 065
     Dates: start: 19800101
  8. EFFEXOR [Concomitant]
     Route: 065
     Dates: start: 20020103

REACTIONS (39)
  - ACUTE MYOCARDIAL INFARCTION [None]
  - ANGINA PECTORIS [None]
  - ANGINA UNSTABLE [None]
  - ANXIETY [None]
  - ANXIETY DISORDER [None]
  - ARTHROPATHY [None]
  - CHEST PAIN [None]
  - CONFUSIONAL STATE [None]
  - COORDINATION ABNORMAL [None]
  - CORONARY ARTERY DISEASE [None]
  - DEEP VEIN THROMBOSIS [None]
  - DEPRESSION [None]
  - DIABETES MELLITUS [None]
  - DIZZINESS [None]
  - DRUG WITHDRAWAL SYNDROME [None]
  - EATING DISORDER [None]
  - FEELING ABNORMAL [None]
  - GASTROENTERITIS [None]
  - GASTROOESOPHAGEAL REFLUX DISEASE [None]
  - GLIOSIS [None]
  - HYPERTENSION [None]
  - MAJOR DEPRESSION [None]
  - MALAISE [None]
  - MEMORY IMPAIRMENT [None]
  - MENTAL DISABILITY [None]
  - MENTAL STATUS CHANGES [None]
  - NAUSEA [None]
  - NEUROPATHY PERIPHERAL [None]
  - ORTHOSTATIC HYPOTENSION [None]
  - OSTEOARTHRITIS [None]
  - PANIC ATTACK [None]
  - POLYNEUROPATHY [None]
  - POSTURING [None]
  - RENAL DISORDER [None]
  - RENAL FAILURE [None]
  - ROTATOR CUFF SYNDROME [None]
  - SUICIDAL IDEATION [None]
  - TREMOR [None]
  - VOMITING [None]
